FAERS Safety Report 9095621 (Version 1)
Quarter: 2013Q1

REPORT INFORMATION
  Report Type: Spontaneous
  Country: US (occurrence: None)
  Receive Date: 20130122
  Receipt Date: 20130122
  Transmission Date: 20140127
  Serious: No
  Sender: FDA-Public Use
  Company Number: 2013-00018

PATIENT
  Age: 82 Year
  Sex: Female

DRUGS (3)
  1. ZICAM COLD REMEDY ORAL MIST [Suspect]
     Indication: NASOPHARYNGITIS
     Dosage: 1 SPRAYED INTO MOUTH 8X
  2. CLONIDINE [Concomitant]
  3. HYDRALAZINE [Concomitant]

REACTIONS (1)
  - Ageusia [None]
